FAERS Safety Report 21981526 (Version 3)
Quarter: 2023Q1

REPORT INFORMATION
  Report Type: Spontaneous
  Country: US (occurrence: US)
  Receive Date: 20230211
  Receipt Date: 20230228
  Transmission Date: 20230417
  Serious: No
  Sender: FDA-Public Use
  Company Number: US-002147023-NVSC2023US032024

PATIENT
  Sex: Female

DRUGS (1)
  1. ENTRESTO [Suspect]
     Active Substance: SACUBITRIL\VALSARTAN
     Indication: Product used for unknown indication
     Dosage: UNK (STARTED 2 MONTHS AGO)
     Route: 065

REACTIONS (4)
  - Bronchitis [Unknown]
  - Headache [Unknown]
  - Cough [Not Recovered/Not Resolved]
  - Insomnia [Unknown]
